FAERS Safety Report 7652093-6 (Version None)
Quarter: 2011Q3

REPORT INFORMATION
  Report Type: 
  Country: None (occurrence: None)
  Receive Date: 20110803
  Receipt Date: 20110617
  Transmission Date: 20111222
  Serious: Yes (Other)
  Sender: FDA-Public Use
  Company Number: US-BAYER-2011-032742

PATIENT
  Age: 18 Year
  Sex: Female
  Weight: 54 kg

DRUGS (3)
  1. DROSPIRENONE AND ETHINYL ESTRADIOL [Suspect]
     Indication: MENSTRUATION IRREGULAR
     Dosage: UNK
     Route: 048
     Dates: start: 20091101, end: 20100201
  2. MIRCETTE [Concomitant]
     Indication: MENSTRUATION IRREGULAR
     Dosage: 0.15-0.02MG TIMES 21/ 0.01 TIMES 5 / ONE TABLET DAILY FOR 28 DAYS
     Route: 048
     Dates: start: 20100201, end: 20100301
  3. YAZ [Suspect]
     Indication: MENSTRUATION IRREGULAR
     Dosage: UNK
     Route: 048
     Dates: start: 20090201, end: 20091101

REACTIONS (10)
  - DIZZINESS [None]
  - CHOLECYSTECTOMY [None]
  - HEADACHE [None]
  - CHOLECYSTITIS [None]
  - NAUSEA [None]
  - CHEST PAIN [None]
  - LOSS OF CONSCIOUSNESS [None]
  - DYSPNOEA [None]
  - ABDOMINAL PAIN UPPER [None]
  - HYPERHIDROSIS [None]
